FAERS Safety Report 4575073-6 (Version None)
Quarter: 2005Q1

REPORT INFORMATION
  Report Type: 
  Country: None (occurrence: None)
  Receive Date: 20050208
  Receipt Date: 20041220
  Transmission Date: 20050727
  Serious: Yes (Other)
  Sender: FDA-Public Use
  Company Number: GB-GLAXOSMITHKLINE-B0362505A

PATIENT
  Age: 69 Year
  Sex: Female
  Weight: 60 kg

DRUGS (4)
  1. SERETIDE [Suspect]
     Indication: ASTHMA
     Dosage: 2Z TWICE PER DAY
     Route: 055
     Dates: start: 20031224
  2. ALBUTEROL [Concomitant]
     Dosage: 2Z AS REQUIRED
     Route: 055
     Dates: start: 20000124
  3. INTAL [Concomitant]
     Route: 055
     Dates: start: 20031224
  4. ASPIRIN [Concomitant]
     Indication: MUSCULOSKELETAL STIFFNESS

REACTIONS (10)
  - ABASIA [None]
  - ARTHRALGIA [None]
  - BACK PAIN [None]
  - BEDRIDDEN [None]
  - BUTTOCK PAIN [None]
  - FEELING ABNORMAL [None]
  - MUSCULOSKELETAL STIFFNESS [None]
  - MYALGIA [None]
  - NECK PAIN [None]
  - PARALYSIS [None]
